FAERS Safety Report 11015917 (Version 2)
Quarter: 2015Q2

REPORT INFORMATION
  Report Type: Spontaneous
  Country: US (occurrence: US)
  Receive Date: 20150412
  Receipt Date: 20150525
  Transmission Date: 20150821
  Serious: No
  Sender: FDA-Public Use
  Company Number: US-JNJFOC-20130619410

PATIENT
  Age: 68 Year
  Sex: Female
  Weight: 77.11 kg

DRUGS (21)
  1. CREON [Concomitant]
     Active Substance: PANCRELIPASE AMYLASE\PANCRELIPASE LIPASE\PANCRELIPASE PROTEASE
     Indication: PANCREATITIS CHRONIC
     Dosage: 120,000 UNITS-24,000 UNITS-76,000 UNITS DELAYED RELEASE CAPSULE, 3 CAPSULES
     Route: 065
  2. OCUVITE [Concomitant]
     Active Substance: VITAMINS
  3. INSULIN [Concomitant]
     Active Substance: INSULIN NOS
     Indication: DIABETES MELLITUS
     Route: 058
     Dates: start: 2001
  4. ATORVASTATIN [Concomitant]
     Active Substance: ATORVASTATIN
     Indication: BLOOD CHOLESTEROL
     Route: 065
  5. XANAX [Concomitant]
     Active Substance: ALPRAZOLAM
     Indication: ANXIETY
     Dosage: 0.5MG TABLET 1 TABS ONCE IN 6 HRS AS NECESSARY.
     Route: 065
  6. SIMPONI [Suspect]
     Active Substance: GOLIMUMAB
     Indication: PSORIATIC ARTHROPATHY
     Dosage: 50MG/0.5ML SOLUTION 50 MG ONCE A MONTH.
     Route: 058
     Dates: start: 2011, end: 2013
  7. NADOLOL. [Concomitant]
     Active Substance: NADOLOL
     Indication: BLOOD PRESSURE
     Route: 065
  8. VENLAFAXINE HYDROCHLORIDE. [Concomitant]
     Active Substance: VENLAFAXINE HYDROCHLORIDE
     Indication: DEPRESSION
     Route: 065
  9. SIMPONI [Suspect]
     Active Substance: GOLIMUMAB
     Indication: PSORIATIC ARTHROPATHY
     Route: 058
     Dates: start: 201304
  10. BUPROPION HYDROCHLORIDE. [Concomitant]
     Active Substance: BUPROPION HYDROCHLORIDE
     Indication: DEPRESSION
     Route: 065
  11. WELLBUTRIN [Concomitant]
     Active Substance: BUPROPION HYDROCHLORIDE
     Route: 065
  12. LUTEIN [Concomitant]
     Active Substance: LUTEIN
     Indication: PSORIATIC ARTHROPATHY
     Route: 065
  13. ZETIA [Concomitant]
     Active Substance: EZETIMIBE
     Indication: BLOOD CHOLESTEROL
     Route: 065
  14. LIPITOR [Concomitant]
     Active Substance: ATORVASTATIN CALCIUM
     Dosage: 1 TABLET AT BEDTIME
     Route: 065
  15. OMEPRAZOLE. [Concomitant]
     Active Substance: OMEPRAZOLE
     Indication: BURNING SENSATION
     Dosage: 10 MG DELAYED RELEASE CAPSULE 1 CAP QHS.
     Route: 065
  16. NOVOLOG [Concomitant]
     Active Substance: INSULIN ASPART
     Indication: DIABETES MELLITUS
     Dosage: FLEXPEN 100 UNITS/ML SOLUTION 25-30 UNITS
     Route: 058
  17. ABILIFY [Concomitant]
     Active Substance: ARIPIPRAZOLE
     Indication: DEPRESSION
     Route: 065
  18. LANTUS [Concomitant]
     Active Substance: INSULIN GLARGINE
     Indication: DIABETES MELLITUS
     Dosage: LANTUS SOLOSTAR PEN 100 UNITS/ML SOLUTION 6O UNITS AM
     Route: 058
  19. LISINOPRIL. [Concomitant]
     Active Substance: LISINOPRIL
     Indication: DEPRESSION
     Route: 048
  20. ASPIRIN. [Concomitant]
     Active Substance: ASPIRIN
     Indication: PSORIATIC ARTHROPATHY
     Route: 065
  21. VITAMIN D3 [Concomitant]
     Active Substance: CHOLECALCIFEROL
     Indication: EYE DISORDER
     Route: 065

REACTIONS (3)
  - Underdose [Not Recovered/Not Resolved]
  - Device malfunction [Not Recovered/Not Resolved]
  - Psoriasis [Not Recovered/Not Resolved]

NARRATIVE: CASE EVENT DATE: 201212
